FAERS Safety Report 12302347 (Version 1)
Quarter: 2016Q2

REPORT INFORMATION
  Report Type: Other
  Country: None (occurrence: US)
  Receive Date: 20160425
  Receipt Date: 20160425
  Transmission Date: 20160815
  Serious: Yes (Other)
  Sender: FDA-Public Use
  Company Number: US-GUTHY-RENKER LLC-1050982

PATIENT
  Age: 62 Year
  Sex: Female

DRUGS (3)
  1. BP MEDICATION [Concomitant]
  2. IT COSMETICS FOUNDATION SPF 50+ LIGHT [Suspect]
     Active Substance: TITANIUM DIOXIDE\ZINC OXIDE
     Indication: PROPHYLAXIS AGAINST SOLAR RADIATION
     Route: 061
     Dates: start: 20160324
  3. VITAMIN D 2000IU QD [Concomitant]

REACTIONS (1)
  - Anaphylactic reaction [Recovered/Resolved]

NARRATIVE: CASE EVENT DATE: 20160324
